FAERS Safety Report 25270680 (Version 3)
Quarter: 2025Q3

REPORT INFORMATION
  Report Type: Report from Study
  Country: US (occurrence: US)
  Receive Date: 20250505
  Receipt Date: 20250703
  Transmission Date: 20251021
  Serious: Yes (Hospitalization, Other)
  Sender: AVERITAS
  Company Number: US-GRUNENTHAL-2025-106277

PATIENT
  Age: 86 Year
  Sex: Female

DRUGS (2)
  1. QUTENZA [Suspect]
     Active Substance: CAPSAICIN
     Indication: Diabetic neuropathy
     Route: 061
     Dates: start: 20250327, end: 20250327
  2. MORPHINE [Concomitant]
     Active Substance: MORPHINE
     Indication: Product used for unknown indication
     Route: 065

REACTIONS (5)
  - Dementia Alzheimer^s type [Recovering/Resolving]
  - Pain in extremity [Recovered/Resolved]
  - Pain in extremity [Unknown]
  - Pain in extremity [Unknown]
  - Cerebrovascular accident [Unknown]

NARRATIVE: CASE EVENT DATE: 20250327
